FAERS Safety Report 8252584-3 (Version None)
Quarter: 2012Q2

REPORT INFORMATION
  Report Type: 
  Country: None (occurrence: None)
  Receive Date: 20120402
  Receipt Date: 20111109
  Transmission Date: 20120825
  Serious: No
  Sender: FDA-Public Use
  Company Number: US-ABBOTT-11P-163-0872714-00

PATIENT
  Sex: Male

DRUGS (11)
  1. ANDROGEL [Suspect]
     Dosage: RESUMED DAILY DOSE
  2. ANDROGEL [Suspect]
     Indication: BLOOD TESTOSTERONE DECREASED
     Route: 061
     Dates: start: 20010101
  3. DIOVAN [Concomitant]
     Indication: HYPERTENSION
  4. SYNTHROID [Concomitant]
     Indication: THYROIDECTOMY
  5. VERAPAMIL [Concomitant]
     Indication: HYPERTENSION
  6. HYTRIN [Concomitant]
     Indication: HYPERTENSION
  7. ASPIRIN [Concomitant]
     Indication: CARDIAC DISORDER
  8. SIMVASTATIN [Concomitant]
     Indication: BLOOD CHOLESTEROL
  9. ANDROGEL [Suspect]
     Dosage: DID NOT TAKE 1 DAILY DOSE EVERY 7 DAYS
  10. NAPROXEN [Concomitant]
     Indication: ARTHRALGIA
  11. NIACIN [Concomitant]
     Indication: VITAMIN SUPPLEMENTATION

REACTIONS (1)
  - BLOOD TESTOSTERONE INCREASED [None]
